FAERS Safety Report 8414635-2 (Version None)
Quarter: 2012Q2

REPORT INFORMATION
  Report Type: 
  Country: None (occurrence: None)
  Receive Date: 20120605
  Receipt Date: 20120521
  Transmission Date: 20120825
  Serious: Yes (Other)
  Sender: FDA-Public Use
  Company Number: US-ARROW GEN-2012-09187

PATIENT
  Age: 66 Year
  Sex: Male

DRUGS (2)
  1. RAMIPRIL [Suspect]
     Indication: HYPERTENSION
     Dosage: UNK
     Route: 065
  2. FLAVOPIRIDOL [Suspect]
     Indication: HAIRY CELL LEUKAEMIA
     Dosage: 50 MG/M2 OVER 30 MINUTES, AND CONTINUOUS IV INFUSION OF 50 MG/M2 OVER 4 HOURS IN CYCLES
     Route: 042

REACTIONS (2)
  - HYPERKALAEMIA [None]
  - DRUG INTERACTION [None]
